FAERS Safety Report 15471822 (Version 1)
Quarter: 2018Q4

REPORT INFORMATION
  Report Type: Spontaneous
  Country: NL (occurrence: NL)
  Receive Date: 20181008
  Receipt Date: 20181008
  Transmission Date: 20190205
  Serious: Yes (Life-Threatening, Hospitalization, Other)
  Sender: FDA-Public Use
  Company Number: NL-AUROBINDO-AUR-APL-2018-048152

PATIENT
  Age: 61 Year
  Sex: Female

DRUGS (6)
  1. FLUOXETINE [Suspect]
     Active Substance: FLUOXETINE HYDROCHLORIDE
     Indication: PRODUCT USED FOR UNKNOWN INDICATION
     Dosage: 139 DOSAGE FORM IN TOTAL
     Route: 048
  2. BROMAZEPAM 3 MG TABLETS [Suspect]
     Active Substance: BROMAZEPAM
     Indication: PRODUCT USED FOR UNKNOWN INDICATION
     Dosage: IN TOTAL
     Route: 048
  3. CLEMASTINE [Suspect]
     Active Substance: CLEMASTINE
     Indication: PRODUCT USED FOR UNKNOWN INDICATION
     Dosage: IN TOTAL
     Route: 048
  4. NAPROXEN 500 MG, TABLET [Suspect]
     Active Substance: NAPROXEN
     Indication: PRODUCT USED FOR UNKNOWN INDICATION
     Dosage: 20 DOSAGE FORM IN TOTAL
     Route: 048
  5. RISPERIDONE FILM-COATED TABLETS 1MG [Suspect]
     Active Substance: RISPERIDONE
     Indication: PRODUCT USED FOR UNKNOWN INDICATION
     Dosage: IN TOTAL
     Route: 048
  6. ZOLPIDEM [Suspect]
     Active Substance: ZOLPIDEM\ZOLPIDEM TARTRATE
     Indication: PRODUCT USED FOR UNKNOWN INDICATION
     Dosage: IN TOTAL
     Route: 048

REACTIONS (9)
  - Toxicity to various agents [Unknown]
  - Cardiac output decreased [Recovered/Resolved]
  - Torsade de pointes [Recovered/Resolved]
  - Intentional overdose [Unknown]
  - Neurological symptom [Unknown]
  - Fall [Recovered/Resolved]
  - Arrhythmia [Recovered/Resolved]
  - Circulatory collapse [Recovered/Resolved]
  - Somnolence [Recovered/Resolved]
